FAERS Safety Report 7782770-8 (Version None)
Quarter: 2011Q3

REPORT INFORMATION
  Report Type: 
  Country: None (occurrence: None)
  Receive Date: 20110928
  Receipt Date: 20110926
  Transmission Date: 20111222
  Serious: Yes (Other)
  Sender: FDA-Public Use
  Company Number: HR-TEVA-302509ISR

PATIENT
  Age: 62 Year
  Sex: Female

DRUGS (4)
  1. HALOPERIDOL [Concomitant]
  2. DIAZEPAM [Concomitant]
  3. BUPIVACAINE HCL [Suspect]
  4. FENTANYL [Suspect]

REACTIONS (6)
  - AGITATION [None]
  - INSOMNIA [None]
  - AGGRESSION [None]
  - PSYCHOMOTOR HYPERACTIVITY [None]
  - TREATMENT NONCOMPLIANCE [None]
  - HYPOMANIA [None]
